FAERS Safety Report 17985571 (Version 1)
Quarter: 2020Q3

REPORT INFORMATION
  Report Type: Spontaneous
  Country: PT (occurrence: PT)
  Receive Date: 20200706
  Receipt Date: 20200706
  Transmission Date: 20201105
  Serious: Yes (Life-Threatening, Hospitalization, Other)
  Sender: FDA-Public Use
  Company Number: PHHY2018PT174590

PATIENT
  Age: 47 Year
  Sex: Female

DRUGS (6)
  1. ETORICOXIB. [Suspect]
     Active Substance: ETORICOXIB
     Indication: PAIN IN EXTREMITY
     Dosage: 2 MG, BID
     Route: 048
  2. DEFLAZACORT [Suspect]
     Active Substance: DEFLAZACORT
     Indication: RASH PRURITIC
     Dosage: UNK
     Route: 065
  3. XYZAL [Suspect]
     Active Substance: LEVOCETIRIZINE DIHYDROCHLORIDE
     Indication: RASH PRURITIC
     Dosage: UNK
     Route: 065
  4. CEFTRIAXONE. [Suspect]
     Active Substance: CEFTRIAXONE
     Indication: EVIDENCE BASED TREATMENT
     Dosage: UNK
     Route: 065
  5. ETORICOXIB. [Suspect]
     Active Substance: ETORICOXIB
     Indication: ARTHRALGIA
  6. ACEMETACIN [Suspect]
     Active Substance: ACEMETACIN
     Indication: ARTHRALGIA
     Dosage: UNK
     Route: 065

REACTIONS (17)
  - Papule [Unknown]
  - Dissociation [Unknown]
  - Toxic epidermal necrolysis [Recovered/Resolved]
  - Macule [Unknown]
  - Renal impairment [Unknown]
  - Fatigue [Unknown]
  - Face oedema [Unknown]
  - Hypoxia [Unknown]
  - Rash pruritic [Unknown]
  - Blister [Unknown]
  - Septic shock [Unknown]
  - Confusional state [Unknown]
  - Hypercapnia [Unknown]
  - Hypotension [Unknown]
  - Tachycardia [Unknown]
  - Hepatic function abnormal [Unknown]
  - Poor peripheral circulation [Unknown]
